FAERS Safety Report 9095137 (Version 1)
Quarter: 2013Q1

REPORT INFORMATION
  Report Type: Spontaneous
  Country: US (occurrence: None)
  Receive Date: 20130123
  Receipt Date: 20130123
  Transmission Date: 20140127
  Serious: Yes (Hospitalization)
  Sender: FDA-Public Use
  Company Number: ACO_33820_2013

PATIENT
  Age: 45 Year
  Sex: Male

DRUGS (4)
  1. AMPYRA (DALFAMPRIDINE) TABLET, 10MG [Suspect]
     Indication: PRODUCT USED FOR UNKNOWN INDICATION
  2. REBIF (INTERFERON BETA-1A) [Suspect]
     Indication: PRODUCT USED FOR UNKNOWN INDICATION
     Route: 058
     Dates: start: 20091217, end: 20120724
  3. ARICEPT (DONEPEZIL HYDROCHLORIDE) [Concomitant]
  4. BACLOFEN (BACLOFEN) [Concomitant]

REACTIONS (3)
  - Convulsion [None]
  - Loss of consciousness [None]
  - Memory impairment [None]
